APPROVED DRUG PRODUCT: CHLORZOXAZONE
Active Ingredient: CHLORZOXAZONE
Strength: 250MG
Dosage Form/Route: TABLET;ORAL
Application: A207483 | Product #001 | TE Code: AA
Applicant: ANDA REPOSITORY LLC
Approved: Jun 24, 2016 | RLD: No | RS: Yes | Type: RX